FAERS Safety Report 9750733 (Version 1)
Quarter: 2013Q4

REPORT INFORMATION
  Report Type: Spontaneous
  Country: US (occurrence: US)
  Receive Date: 20131212
  Receipt Date: 20131212
  Transmission Date: 20140711
  Serious: No
  Sender: FDA-Public Use
  Company Number: US-BIOGENIDEC-2013BI094026

PATIENT
  Age: 52 Year
  Sex: Female
  Weight: 56 kg

DRUGS (6)
  1. TECFIDERA [Suspect]
     Indication: MULTIPLE SCLEROSIS
     Route: 048
     Dates: start: 20130828
  2. AMBIEN [Concomitant]
  3. ATIVAN [Concomitant]
  4. CALCIUM + D [Concomitant]
  5. NEURONTIN [Concomitant]
  6. VICODIN [Concomitant]

REACTIONS (1)
  - Abdominal distension [Not Recovered/Not Resolved]
